FAERS Safety Report 6931927-4 (Version None)
Quarter: 2010Q3

REPORT INFORMATION
  Report Type: 
  Country: None (occurrence: None)
  Receive Date: 20100819
  Receipt Date: 20100817
  Transmission Date: 20110219
  Serious: Yes (Hospitalization)
  Sender: FDA-Public Use
  Company Number: US-GILEAD-2010-0030361

PATIENT
  Sex: Female

DRUGS (14)
  1. LETAIRIS [Suspect]
     Indication: PULMONARY ARTERIAL HYPERTENSION
     Route: 048
     Dates: start: 20090405
  2. VIAGRA [Concomitant]
  3. COUMADIN [Concomitant]
  4. LASIX [Concomitant]
  5. NORVASC [Concomitant]
  6. CATTAPRES-TTS [Concomitant]
  7. LEXAPRO [Concomitant]
  8. NEXIUM [Concomitant]
  9. COLACE [Concomitant]
  10. CENTRUM SILVER [Concomitant]
  11. FOLIC ACID [Concomitant]
  12. VITAMIN B-12 [Concomitant]
  13. VITAMIN B6 [Concomitant]
  14. KLOR-CON [Concomitant]

REACTIONS (4)
  - ARRHYTHMIA [None]
  - DYSPNOEA [None]
  - OEDEMA PERIPHERAL [None]
  - PNEUMONIA [None]
